FAERS Safety Report 19826841 (Version 1)
Quarter: 2021Q3

REPORT INFORMATION
  Report Type: Spontaneous
  Country: US (occurrence: US)
  Receive Date: 20210914
  Receipt Date: 20210914
  Transmission Date: 20211014
  Serious: No
  Sender: FDA-Public Use
  Company Number: None

PATIENT
  Sex: Male

DRUGS (5)
  1. COLESEVELAM [Concomitant]
     Active Substance: COLESEVELAM
     Dates: start: 20210717
  2. OLM MED/HCTZ [Concomitant]
     Dates: start: 20210717
  3. CRESTOR [Concomitant]
     Active Substance: ROSUVASTATIN CALCIUM
     Dates: start: 20210717
  4. ASPIRIN. [Concomitant]
     Active Substance: ASPIRIN
     Dates: start: 20210717
  5. CABOMETYX [Suspect]
     Active Substance: CABOZANTINIB S-MALATE
     Indication: CARDIAC DISORDER
     Route: 048
     Dates: start: 20210624

REACTIONS (3)
  - Diarrhoea [None]
  - Palmar-plantar erythrodysaesthesia syndrome [None]
  - Therapy interrupted [None]
